FAERS Safety Report 20696514 (Version 1)
Quarter: 2022Q2

REPORT INFORMATION
  Report Type: Other
  Country: US (occurrence: US)
  Receive Date: 20220411
  Receipt Date: 20220411
  Transmission Date: 20220721
  Serious: No
  Sender: FDA-Public Use
  Company Number: US-TRAVERE-2022TVT00096

PATIENT
  Age: 2 Month
  Sex: Male

DRUGS (1)
  1. CHOLBAM [Suspect]
     Active Substance: CHOLIC ACID
     Indication: Cerebrohepatorenal syndrome
     Dosage: 50 MG / QD
     Route: 048
     Dates: start: 20220216, end: 202202

REACTIONS (2)
  - Abdominal discomfort [Unknown]
  - Seizure [Unknown]

NARRATIVE: CASE EVENT DATE: 20220216
